FAERS Safety Report 17803049 (Version 1)
Quarter: 2020Q2

REPORT INFORMATION
  Report Type: Spontaneous
  Country: US (occurrence: US)
  Receive Date: 20200519
  Receipt Date: 20200519
  Transmission Date: 20200714
  Serious: Yes (Hospitalization)
  Sender: FDA-Public Use
  Company Number: None

PATIENT
  Sex: Female
  Weight: 53.75 kg

DRUGS (6)
  1. VINCRISTINE SULFATE. [Concomitant]
     Active Substance: VINCRISTINE SULFATE
  2. MERCAPTOPURINE. [Suspect]
     Active Substance: MERCAPTOPURINE
  3. METHOTREXATE. [Concomitant]
     Active Substance: METHOTREXATE
  4. DEXAMETHASONE. [Concomitant]
     Active Substance: DEXAMETHASONE
  5. CYTARABINE. [Concomitant]
     Active Substance: CYTARABINE
  6. HYDROCORTISONE. [Concomitant]
     Active Substance: HYDROCORTISONE

REACTIONS (23)
  - Abdominal pain upper [None]
  - Dyspnoea exertional [None]
  - Ammonia increased [None]
  - Cholelithiasis [None]
  - Hyperglycaemia [None]
  - Drug ineffective [None]
  - Anaemia [None]
  - Mental status changes [None]
  - Liver iron concentration increased [None]
  - Mucosal inflammation [None]
  - Cholestasis [None]
  - Neutropenia [None]
  - Radiation injury [None]
  - Oral pain [None]
  - Iron overload [None]
  - Hyperbilirubinaemia [None]
  - Hepatosplenomegaly [None]
  - Therapy interrupted [None]
  - Nausea [None]
  - Chest pain [None]
  - Pyrexia [None]
  - Thrombocytopenia [None]
  - Serum ferritin increased [None]

NARRATIVE: CASE EVENT DATE: 20191117
